FAERS Safety Report 7788879-7 (Version None)
Quarter: 2011Q3

REPORT INFORMATION
  Report Type: 
  Country: None (occurrence: None)
  Receive Date: 20110930
  Receipt Date: 20110919
  Transmission Date: 20111222
  Serious: Yes (Hospitalization)
  Sender: FDA-Public Use
  Company Number: AT-CELGENEUS-009-C5013-11042193

PATIENT
  Sex: Male
  Weight: 68.5 kg

DRUGS (8)
  1. CC-5013\PLACEBO [Suspect]
     Dosage: 25 MILLIGRAM
     Route: 048
     Dates: start: 20110509
  2. ASPIRIN [Suspect]
     Indication: THROMBOSIS PROPHYLAXIS
     Dosage: 100 MILLIGRAM
     Route: 048
     Dates: start: 20110331, end: 20110416
  3. LOVENOX [Concomitant]
     Indication: THROMBOSIS PROPHYLAXIS
     Dosage: 40 MILLIGRAM
     Route: 058
     Dates: start: 20110417
  4. CC-5013\PLACEBO [Suspect]
     Indication: PROSTATE CANCER
     Dosage: 25 MILLIGRAM
     Route: 048
     Dates: start: 20110411, end: 20110416
  5. DOCETAXEL [Suspect]
     Indication: PROSTATE CANCER
     Dosage: 125 MILLIGRAM
     Route: 065
     Dates: start: 20110411, end: 20110411
  6. DOCETAXEL [Suspect]
     Dosage: 135 MILLIGRAM
     Route: 065
     Dates: start: 20110509
  7. PREDNISONE [Suspect]
     Indication: PROSTATE CANCER
     Dosage: 10 MILLIGRAM
     Dates: start: 20110411, end: 20110416
  8. PREDNISONE [Suspect]
     Dosage: 10 MILLIGRAM
     Dates: start: 20110509

REACTIONS (3)
  - LEUKOPENIA [None]
  - DIARRHOEA HAEMORRHAGIC [None]
  - PYREXIA [None]
